FAERS Safety Report 8427476-7 (Version None)
Quarter: 2012Q2

REPORT INFORMATION
  Report Type: 
  Country: None (occurrence: None)
  Receive Date: 20120611
  Receipt Date: 20120604
  Transmission Date: 20120825
  Serious: Yes (Hospitalization)
  Sender: FDA-Public Use
  Company Number: US-ELI_LILLY_AND_COMPANY-US201206001598

PATIENT
  Sex: Female

DRUGS (1)
  1. ADCIRCA [Suspect]
     Indication: PULMONARY HYPERTENSION
     Dosage: 40 MG DAILY
     Route: 065
     Dates: start: 20110301, end: 20120523

REACTIONS (3)
  - DEAFNESS UNILATERAL [None]
  - VOMITING [None]
  - NAUSEA [None]
